FAERS Safety Report 8305323-1 (Version None)
Quarter: 2012Q2

REPORT INFORMATION
  Report Type: 
  Country: None (occurrence: None)
  Receive Date: 20120423
  Receipt Date: 20120413
  Transmission Date: 20120825
  Serious: No
  Sender: FDA-Public Use
  Company Number: US-PFIZER INC-2012092886

PATIENT
  Sex: Female
  Weight: 76.644 kg

DRUGS (10)
  1. VENLAFAXINE HCL [Suspect]
     Dosage: 75 MG, 3X/DAY
     Route: 048
     Dates: start: 20070101, end: 20070101
  2. SIMVASTATIN [Concomitant]
     Indication: BLOOD CHOLESTEROL ABNORMAL
     Dosage: UNK
  3. EFFEXOR XR [Concomitant]
     Indication: ANXIETY
     Dosage: UNK
  4. EFFEXOR XR [Concomitant]
     Indication: AGORAPHOBIA
  5. SIMVASTATIN [Concomitant]
     Indication: TRANSIENT ISCHAEMIC ATTACK
  6. ATENOLOL [Concomitant]
     Indication: TRANSIENT ISCHAEMIC ATTACK
  7. ATENOLOL [Concomitant]
     Indication: BLOOD CHOLESTEROL ABNORMAL
     Dosage: UNK
  8. PLAVIX [Concomitant]
     Indication: BLOOD CHOLESTEROL ABNORMAL
     Dosage: UNK
  9. EFFEXOR XR [Concomitant]
     Indication: DEPRESSION
     Dosage: 150 MG, 1X/DAY
     Route: 048
     Dates: end: 20070101
  10. PLAVIX [Concomitant]
     Indication: TRANSIENT ISCHAEMIC ATTACK

REACTIONS (1)
  - DRUG INEFFECTIVE [None]
